FAERS Safety Report 8563971-8 (Version None)
Quarter: 2012Q3

REPORT INFORMATION
  Report Type: 
  Country: None (occurrence: None)
  Receive Date: 20120803
  Receipt Date: 20120730
  Transmission Date: 20120928
  Serious: Yes (Other)
  Sender: FDA-Public Use
  Company Number: PHHY2012NZ059441

PATIENT
  Sex: Female
  Weight: 64 kg

DRUGS (1)
  1. ZOLEDRONOC ACID [Suspect]
     Indication: OSTEOPOROSIS
     Dosage: 5 MG, UNK
     Route: 042
     Dates: start: 20110119, end: 20110119

REACTIONS (2)
  - ABDOMINAL ADHESIONS [None]
  - INTESTINAL OBSTRUCTION [None]
